FAERS Safety Report 15887818 (Version 1)
Quarter: 2019Q1

REPORT INFORMATION
  Report Type: Other
  Country: IT (occurrence: IT)
  Receive Date: 20190130
  Receipt Date: 20190130
  Transmission Date: 20190417
  Serious: Yes (Other)
  Sender: FDA-Public Use
  Company Number: IT-ACCORD-104161

PATIENT
  Age: 97 Year
  Sex: Male

DRUGS (6)
  1. QUETIAPINE. [Suspect]
     Active Substance: QUETIAPINE
     Indication: PSYCHOTIC DISORDER
     Route: 048
     Dates: start: 20180309, end: 20180309
  2. DIBASE [Concomitant]
     Active Substance: CHOLECALCIFEROL
     Route: 048
  3. ACETYLSALICYLIC ACID [Concomitant]
     Active Substance: ASPIRIN
     Route: 048
  4. TAMSULOSIN [Concomitant]
     Active Substance: TAMSULOSIN
  5. DUTASTERIDE. [Concomitant]
     Active Substance: DUTASTERIDE
     Route: 048
  6. MEMANTINE. [Concomitant]
     Active Substance: MEMANTINE
     Route: 048

REACTIONS (2)
  - Hyporesponsive to stimuli [Recovering/Resolving]
  - Sopor [Recovering/Resolving]

NARRATIVE: CASE EVENT DATE: 20180309
